FAERS Safety Report 13008414 (Version 2)
Quarter: 2017Q1

REPORT INFORMATION
  Report Type: Report from Study
  Country: US (occurrence: US)
  Receive Date: 20161208
  Receipt Date: 20170208
  Transmission Date: 20170428
  Serious: Yes (Hospitalization)
  Sender: FDA-Public Use
  Company Number: US-TAKEDA-2016MPI010415

PATIENT
  Age: 76 Year
  Sex: Female

DRUGS (1)
  1. VELCADE [Suspect]
     Active Substance: BORTEZOMIB
     Indication: PLASMA CELL MYELOMA
     Dosage: 1.8 MG, UNK
     Route: 058
     Dates: start: 20170109

REACTIONS (3)
  - Physical examination abnormal [Unknown]
  - Gastrointestinal examination abnormal [Unknown]
  - Neurological examination abnormal [Unknown]

NARRATIVE: CASE EVENT DATE: 20170109
